FAERS Safety Report 12663690 (Version 3)
Quarter: 2018Q3

REPORT INFORMATION
  Report Type: Spontaneous
  Country: US (occurrence: US)
  Receive Date: 20160818
  Receipt Date: 20180829
  Transmission Date: 20181010
  Serious: Yes (Other)
  Sender: FDA-Public Use
  Company Number: US-ACADIA PHARMACEUTICALS INC.-ACA-2016-000244

PATIENT
  Age: 73 Year
  Sex: Male

DRUGS (1)
  1. NUPLAZID [Suspect]
     Active Substance: PIMAVANSERIN TARTRATE
     Indication: PARKINSON^S DISEASE PSYCHOSIS
     Dosage: 34 MG, QD
     Route: 048
     Dates: start: 20160724

REACTIONS (9)
  - Wrong technique in product usage process [Unknown]
  - Aggression [Unknown]
  - Drug ineffective [Unknown]
  - Confusional state [Unknown]
  - Urinary retention [Unknown]
  - Refusal of treatment by patient [Unknown]
  - Hypersomnia [Unknown]
  - Insomnia [Unknown]
  - Dysphagia [Unknown]

NARRATIVE: CASE EVENT DATE: 2016
